FAERS Safety Report 17649776 (Version 1)
Quarter: 2020Q2

REPORT INFORMATION
  Report Type: Spontaneous
  Country: US (occurrence: US)
  Receive Date: 20200408
  Receipt Date: 20200408
  Transmission Date: 20200713
  Serious: Yes (Life-Threatening, Hospitalization, Other)
  Sender: FDA-Public Use
  Company Number: None

PATIENT
  Age: 24 Year
  Sex: Female
  Weight: 65.25 kg

DRUGS (2)
  1. ORTHO MICRONOR [Suspect]
     Active Substance: NORETHINDRONE
     Indication: CONTRACEPTION
     Dosage: ?          QUANTITY:1 TABLET(S);?
     Route: 048
  2. ASPIRIN 81 MG [Concomitant]
     Active Substance: ASPIRIN

REACTIONS (2)
  - Thoracic outlet syndrome [None]
  - Fatigue [None]

NARRATIVE: CASE EVENT DATE: 20170327
